FAERS Safety Report 6335274-3 (Version None)
Quarter: 2009Q3

REPORT INFORMATION
  Report Type: 
  Country: None (occurrence: None)
  Receive Date: 20090831
  Receipt Date: 20090823
  Transmission Date: 20100115
  Serious: Yes (Other)
  Sender: FDA-Public Use
  Company Number: US-B.I. PHARMACEUTICALS,INC./RIDGEFIELD-2009-BP-09905BP

PATIENT
  Sex: Female

DRUGS (4)
  1. FLOMAX [Suspect]
     Indication: HYPERTONIC BLADDER
     Dosage: 0.4 MG
     Route: 048
     Dates: start: 20090821, end: 20090823
  2. CIPRO [Concomitant]
     Indication: ANTIBIOTIC PROPHYLAXIS
     Dates: start: 20090817
  3. CRESTOR [Concomitant]
     Indication: C-REACTIVE PROTEIN INCREASED
  4. CAPIDEX [Concomitant]
     Indication: GASTROOESOPHAGEAL REFLUX DISEASE

REACTIONS (3)
  - CHEST PAIN [None]
  - PALPITATIONS [None]
  - VISUAL IMPAIRMENT [None]
